FAERS Safety Report 8966072 (Version 1)
Quarter: 2012Q4

REPORT INFORMATION
  Report Type: Spontaneous
  Country: TR (occurrence: None)
  Receive Date: 20121206
  Receipt Date: 20121206
  Transmission Date: 20130627
  Serious: Yes (Other)
  Sender: FDA-Public Use
  Company Number: TR-1195464

PATIENT

DRUGS (9)
  1. MIOSTAT [Suspect]
     Indication: MIOSIS
     Route: 031
  2. TROPICAMIDE [Concomitant]
  3. MYDFRIN [Concomitant]
  4. PROPARACAINE [Concomitant]
  5. IODINE [Concomitant]
  6. PROVISC [Concomitant]
  7. MAXIDEX OPHTHALMIC [Concomitant]
  8. TOBREX [Concomitant]
  9. MAXIDEX OPHTHALMIC [Concomitant]

REACTIONS (1)
  - Cystoid macular oedema [None]
